FAERS Safety Report 21020393 (Version 1)
Quarter: 2022Q2

REPORT INFORMATION
  Report Type: Spontaneous
  Country: JP (occurrence: JP)
  Receive Date: 20220629
  Receipt Date: 20220629
  Transmission Date: 20220721
  Serious: Yes (Other)
  Sender: FDA-Public Use
  Company Number: JP-CELGENE-JPN-20211105274

PATIENT
  Age: 69 Year
  Sex: Male

DRUGS (9)
  1. VIDAZA [Suspect]
     Active Substance: AZACITIDINE
     Indication: Myelodysplastic syndrome
     Dosage: FREQUENCY TEXT: NOT PROVIDED
     Route: 058
  2. VIDAZA [Suspect]
     Active Substance: AZACITIDINE
     Indication: Acute myeloid leukaemia
     Route: 058
  3. VIDAZA [Suspect]
     Active Substance: AZACITIDINE
     Route: 058
  4. VIDAZA [Suspect]
     Active Substance: AZACITIDINE
     Route: 058
  5. VIDAZA [Suspect]
     Active Substance: AZACITIDINE
     Route: 058
  6. VIDAZA [Suspect]
     Active Substance: AZACITIDINE
     Route: 058
  7. VIDAZA [Suspect]
     Active Substance: AZACITIDINE
     Route: 058
  8. VIDAZA [Suspect]
     Active Substance: AZACITIDINE
     Route: 058
  9. VIDAZA [Suspect]
     Active Substance: AZACITIDINE
     Route: 058

REACTIONS (7)
  - Bacteraemia [Unknown]
  - Pneumonia fungal [Unknown]
  - Cystitis haemorrhagic [Unknown]
  - Pneumonia [Unknown]
  - Febrile neutropenia [Unknown]
  - Septic shock [Unknown]
  - Prostatitis [Unknown]
